FAERS Safety Report 14717821 (Version 4)
Quarter: 2019Q3

REPORT INFORMATION
  Report Type: Spontaneous
  Country: US (occurrence: US)
  Receive Date: 20180404
  Receipt Date: 20190827
  Transmission Date: 20191004
  Serious: No
  Sender: FDA-Public Use
  Company Number: US-SA-2018SA029386

PATIENT
  Age: 28 Year
  Sex: Female
  Weight: 52.15 kg

DRUGS (20)
  1. DUPIXENT [Suspect]
     Active Substance: DUPILUMAB
     Indication: DERMATITIS ATOPIC
     Dosage: 300 MG, QOW
     Route: 058
     Dates: start: 201709
  2. MONUROL [Concomitant]
     Active Substance: FOSFOMYCIN TROMETHAMINE
  3. EPIPEN [Concomitant]
     Active Substance: EPINEPHRINE
     Dosage: 0.3MG/0.3ML
  4. CLOBETASOL PROPIONATE. [Concomitant]
     Active Substance: CLOBETASOL PROPIONATE
  5. ELIDEL [Concomitant]
     Active Substance: PIMECROLIMUS
  6. OXCARBAZEPIN [Concomitant]
     Active Substance: OXCARBAZEPINE
  7. ATOMOXETINE. [Concomitant]
     Active Substance: ATOMOXETINE HYDROCHLORIDE
  8. ALBUTEROL [SALBUTAMOL] [Concomitant]
     Active Substance: ALBUTEROL
     Dosage: INHALER
  9. DUPIXENT [Suspect]
     Active Substance: DUPILUMAB
     Dosage: 300 MG, QOW
     Route: 058
     Dates: start: 20180123
  10. ZYRTEC [Concomitant]
     Active Substance: CETIRIZINE HYDROCHLORIDE
  11. LITHIUM CARBON [Concomitant]
     Active Substance: LITHIUM CARBONATE
     Dosage: UNK
  12. PROAIR HFA [Concomitant]
     Active Substance: ALBUTEROL SULFATE
     Dosage: 90 BASE MCG/ACT
  13. CLOBETASOL PROPIONATE. [Concomitant]
     Active Substance: CLOBETASOL PROPIONATE
     Dosage: 0.05% SOLUTION
  14. DUPIXENT [Suspect]
     Active Substance: DUPILUMAB
     Indication: ECZEMA
     Dosage: 300 MG, QOW
     Route: 058
  15. HYDROXYZINE [Concomitant]
     Active Substance: HYDROXYZINE HYDROCHLORIDE
  16. OLOPATADINE. [Concomitant]
     Active Substance: OLOPATADINE
  17. FLUTICASONE. [Concomitant]
     Active Substance: FLUTICASONE
     Dosage: SUSPENSION
  18. QUETIAPINE. [Concomitant]
     Active Substance: QUETIAPINE
  19. PRAZOSIN. [Concomitant]
     Active Substance: PRAZOSIN
  20. DESOXIMETASONE. [Concomitant]
     Active Substance: DESOXIMETASONE

REACTIONS (18)
  - Urticaria [Recovered/Resolved]
  - Nasal congestion [Unknown]
  - Asthma exercise induced [Unknown]
  - Diarrhoea [Not Recovered/Not Resolved]
  - Rash [Unknown]
  - Blood pressure increased [Unknown]
  - Increased tendency to bruise [Unknown]
  - Product use issue [Unknown]
  - Influenza like illness [Recovered/Resolved]
  - Pain [Unknown]
  - Unevaluable event [Unknown]
  - Oropharyngeal pain [Unknown]
  - Pyrexia [Not Recovered/Not Resolved]
  - Upper respiratory tract infection [Unknown]
  - Gastrointestinal pain [Unknown]
  - Lung disorder [Unknown]
  - Dermatitis atopic [Not Recovered/Not Resolved]
  - Lymphocyte count increased [Recovered/Resolved]

NARRATIVE: CASE EVENT DATE: 201709
